FAERS Safety Report 14212374 (Version 1)
Quarter: 2017Q4

REPORT INFORMATION
  Report Type: Spontaneous
  Country: US (occurrence: None)
  Receive Date: 20171121
  Receipt Date: 20171121
  Transmission Date: 20180321
  Serious: Yes (Other)
  Sender: FDA-Public Use
  Company Number: None

PATIENT
  Sex: Male

DRUGS (1)
  1. SUTENT [Suspect]
     Active Substance: SUNITINIB MALATE
     Indication: RENAL CANCER
     Dosage: 25MG DAILY FOR 28 DAYS THEN 2 WEEKS OFF BY MOUTH
     Route: 048
     Dates: start: 20170424

REACTIONS (3)
  - Erythema [None]
  - Joint swelling [None]
  - Muscular weakness [None]
